FAERS Safety Report 4977701-X (Version None)
Quarter: 2006Q2

REPORT INFORMATION
  Report Type: 
  Country: None (occurrence: None)
  Receive Date: 20060420
  Receipt Date: 20060110
  Transmission Date: 20061013
  Serious: No
  Sender: FDA-Public Use
  Company Number: US-GLAXOSMITHKLINE-A0588586A

PATIENT
  Age: 73 Year
  Sex: Male
  Weight: 75.9 kg

DRUGS (2)
  1. LITHIUM CARBONATE [Suspect]
     Dosage: 300MG FOUR TIMES PER DAY
     Route: 048
     Dates: start: 20051003
  2. NO CONCURRENT MEDICATION [Concomitant]

REACTIONS (1)
  - DRUG INEFFECTIVE [None]
